FAERS Safety Report 24636958 (Version 1)
Quarter: 2024Q4

REPORT INFORMATION
  Report Type: Spontaneous
  Country: US (occurrence: None)
  Receive Date: 20241119
  Receipt Date: 20241119
  Transmission Date: 20250115
  Serious: Yes (Hospitalization)
  Sender: Public
  Company Number: None

PATIENT
  Sex: Female

DRUGS (2)
  1. MACITENTAN\TADALAFIL [Suspect]
     Active Substance: MACITENTAN\TADALAFIL
     Indication: Pulmonary arterial hypertension
     Dosage: OTHER STRENGTH : 10/40MG ;?OTHER QUANTITY : 10/40MG;?FREQUENCY : DAILY;?
     Route: 048
     Dates: start: 202408
  2. UPTRAVI (MNTH 1 TITR) [Concomitant]

REACTIONS (3)
  - Dyspnoea [None]
  - Diarrhoea [None]
  - Dyspnoea exertional [None]
